FAERS Safety Report 22164204 (Version 1)
Quarter: 2023Q2

REPORT INFORMATION
  Report Type: Other
  Country: GB (occurrence: GB)
  Receive Date: 20230402
  Receipt Date: 20230402
  Transmission Date: 20230722
  Serious: Yes (Other)
  Sender: FDA-Public Use
  Company Number: None

PATIENT
  Age: 44 Year
  Sex: Male
  Weight: 80 kg

DRUGS (1)
  1. PREDNISOLONE [Suspect]
     Active Substance: PREDNISOLONE
     Indication: Nasal polyps
     Dosage: 60MG DAILY FOR 3 DAYS, 40MG DAILY FOR 3 DAYS THE 20MG DAILY FOR 5 DAYS (TABLET)
     Route: 065
     Dates: start: 20230301

REACTIONS (2)
  - Central serous chorioretinopathy [None]
  - Off label use [Unknown]

NARRATIVE: CASE EVENT DATE: 20230301
